FAERS Safety Report 14137902 (Version 1)
Quarter: 2017Q4

REPORT INFORMATION
  Report Type: Spontaneous
  Country: US (occurrence: US)
  Receive Date: 20171027
  Receipt Date: 20171027
  Transmission Date: 20180321
  Serious: No
  Sender: FDA-Public Use
  Company Number: US-MIST-TIR-2017-0855

PATIENT
  Age: 37 Year
  Sex: Female
  Weight: 77.63 kg

DRUGS (1)
  1. TIROSINT [Suspect]
     Active Substance: LEVOTHYROXINE SODIUM
     Indication: HYPOTHYROIDISM
     Dosage: ONE 125MCG CAPSULE DAILY
     Route: 048
     Dates: start: 201708, end: 20170905

REACTIONS (3)
  - Feeling abnormal [Unknown]
  - Dysarthria [Unknown]
  - Abdominal pain lower [Not Recovered/Not Resolved]

NARRATIVE: CASE EVENT DATE: 201708
